FAERS Safety Report 5312669-8 (Version None)
Quarter: 2007Q2

REPORT INFORMATION
  Report Type: 
  Country: None (occurrence: None)
  Receive Date: 20070430
  Receipt Date: 20070215
  Transmission Date: 20071010
  Serious: No
  Sender: FDA-Public Use
  Company Number: 2007UW03032

PATIENT
  Age: 50 Year
  Sex: Female

DRUGS (3)
  1. NEXIUM [Suspect]
     Indication: GASTROOESOPHAGEAL REFLUX DISEASE
     Route: 048
     Dates: start: 20070210
  2. NEXIUM [Suspect]
     Indication: ULCER
     Route: 048
     Dates: start: 20070210
  3. NEXIUM [Suspect]
     Indication: ABDOMINAL PAIN
     Route: 048
     Dates: start: 20070210

REACTIONS (1)
  - PHARYNGOLARYNGEAL PAIN [None]
